FAERS Safety Report 5330455-X (Version None)
Quarter: 2007Q2

REPORT INFORMATION
  Report Type: 
  Country: None (occurrence: None)
  Receive Date: 20070521
  Receipt Date: 20070509
  Transmission Date: 20071010
  Serious: Yes (Other)
  Sender: FDA-Public Use
  Company Number: US-PFIZER INC-2007037959

PATIENT
  Sex: Male

DRUGS (2)
  1. LIPITOR [Suspect]
     Dosage: DAILY DOSE:20
     Dates: start: 20050107, end: 20070425
  2. TRICOR [Concomitant]
     Dosage: DAILY DOSE:145MG

REACTIONS (10)
  - CHILLS [None]
  - FATIGUE [None]
  - HAEMOPTYSIS [None]
  - HEPATIC ENZYME INCREASED [None]
  - HEPATITIS [None]
  - HOT FLUSH [None]
  - HYPERSENSITIVITY [None]
  - HYPOVENTILATION [None]
  - MYALGIA [None]
  - WEIGHT DECREASED [None]
